FAERS Safety Report 11746899 (Version 1)
Quarter: 2015Q4

REPORT INFORMATION
  Report Type: Spontaneous
  Country: US (occurrence: US)
  Receive Date: 20151117
  Receipt Date: 20151117
  Transmission Date: 20160304
  Serious: Yes (Hospitalization, Other)
  Sender: FDA-Public Use
  Company Number: US-PFIZER INC-2015382362

PATIENT
  Age: 62 Year
  Sex: Female
  Weight: 66 kg

DRUGS (3)
  1. RESTASIS [Concomitant]
     Active Substance: CYCLOSPORINE
     Dosage: UNK, 2X/DAY
     Dates: start: 2012
  2. XOLAIR [Concomitant]
     Active Substance: OMALIZUMAB
     Dosage: INJECTIONS, 2 SYRINGES ONCE A MONTH FOR THE PAST COUPLE OF YEARS
  3. LYRICA [Suspect]
     Active Substance: PREGABALIN
     Indication: NEUROPATHY PERIPHERAL
     Dosage: 100 MG, 2X/DAY
     Route: 048
     Dates: start: 2013

REACTIONS (8)
  - Loss of consciousness [Unknown]
  - Weight increased [Recovering/Resolving]
  - Blindness [Not Recovered/Not Resolved]
  - Localised infection [Recovering/Resolving]
  - Disease recurrence [Recovering/Resolving]
  - Apparent death [Unknown]
  - Pyrexia [Unknown]
  - Blood glucose fluctuation [Unknown]

NARRATIVE: CASE EVENT DATE: 201502
